FAERS Safety Report 9070397 (Version 1)
Quarter: 2013Q1

REPORT INFORMATION
  Report Type: Not Available
  Country: FR (occurrence: FR)
  Receive Date: 20130215
  Receipt Date: 20130215
  Transmission Date: 20140127
  Serious: Yes (Hospitalization, Other)
  Sender: FDA-Public Use
  Company Number: FR-NAPPMUNDI-GBR-2013-0013174

PATIENT
  Age: 79 Year
  Sex: Female

DRUGS (11)
  1. OXYNORM [Suspect]
     Indication: NEURALGIA
     Dosage: 20 MG, QID
     Route: 048
     Dates: start: 20121229
  2. DUROGESIC DTRANS [Suspect]
     Indication: NEURALGIA
     Dosage: 75 MCG, Q1H
     Route: 062
     Dates: start: 20130102
  3. LYRICA [Suspect]
     Indication: NEURALGIA
     Dosage: 300 MG, BID
     Route: 048
     Dates: start: 20130104
  4. LAROXYL [Suspect]
     Indication: PRODUCT USED FOR UNKNOWN INDICATION
     Dosage: 40 MG/ML, UNK
     Route: 048
     Dates: start: 2009, end: 20130104
  5. DUPHALAC                           /00163401/ [Concomitant]
     Indication: CONSTIPATION
     Dosage: 2 DF, Q48H
     Route: 048
     Dates: end: 20121229
  6. COAPROVEL [Concomitant]
     Dosage: UNK
     Dates: start: 1990
  7. UVEDOSE [Concomitant]
     Dosage: 1 DF, EVERY 3 MONTHS
     Route: 048
     Dates: start: 201206
  8. TRIATEC                            /00885601/ [Concomitant]
     Indication: HYPERTENSION
     Dosage: UNK
     Route: 048
     Dates: start: 1992
  9. IMPORTAL [Concomitant]
     Indication: CONSTIPATION
     Dosage: 10 G, BID
     Route: 048
     Dates: start: 1992
  10. LEVOTHYROX [Concomitant]
     Indication: HYPOTHYROIDISM
     Dosage: 75 MCG, UNK
     Route: 048
     Dates: start: 2006
  11. DIFFU K [Concomitant]

REACTIONS (4)
  - Somnolence [Recovered/Resolved]
  - Myoclonus [Recovered/Resolved]
  - Miosis [Recovered/Resolved]
  - Hypotonia [Recovered/Resolved]
